FAERS Safety Report 17255454 (Version 3)
Quarter: 2020Q1

REPORT INFORMATION
  Report Type: Report from Study
  Country: None (occurrence: ES)
  Receive Date: 20200110
  Receipt Date: 20200129
  Transmission Date: 20200409
  Serious: Yes (Hospitalization)
  Sender: FDA-Public Use
  Company Number: ES-ABBVIE-20K-144-3225617-00

PATIENT
  Age: 71 Year
  Sex: Female
  Weight: 69 kg

DRUGS (1)
  1. DUODOPA [Suspect]
     Active Substance: CARBIDOPA\LEVODOPA
     Indication: PARKINSON^S DISEASE
     Route: 050
     Dates: start: 20171130

REACTIONS (4)
  - Fall [Unknown]
  - Upper limb fracture [Recovering/Resolving]
  - Incorrect dose administered [Unknown]
  - Fracture malunion [Unknown]

NARRATIVE: CASE EVENT DATE: 2019
